FAERS Safety Report 20816249 (Version 1)
Quarter: 2022Q2

REPORT INFORMATION
  Report Type: Spontaneous
  Country: IN (occurrence: IN)
  Receive Date: 20220511
  Receipt Date: 20220511
  Transmission Date: 20220720
  Serious: Yes (Hospitalization, Other)
  Sender: FDA-Public Use
  Company Number: IN-drreddys-LIT/IND/22/0149676

PATIENT
  Age: 12 Year
  Sex: Male

DRUGS (4)
  1. AMPHOTERICIN B [Suspect]
     Active Substance: AMPHOTERICIN B
     Indication: Mucormycosis
     Dosage: 0.5 MG/KG/DAY, WHICH WAS FURTHER INCREASED TO 1.5 MG/KG/DAY
  2. AMPHOTERICIN B [Suspect]
     Active Substance: AMPHOTERICIN B
     Indication: Antifungal prophylaxis
     Dosage: 0.5 MG/KG/DAY, WHICH WAS FURTHER INCREASED TO 1.5 MG/KG/DAY
  3. DEXAMETHASONE [Suspect]
     Active Substance: DEXAMETHASONE
     Indication: Acute lymphocytic leukaemia
  4. FLUCONAZOLE [Concomitant]
     Active Substance: FLUCONAZOLE
     Indication: Candida sepsis

REACTIONS (3)
  - Febrile neutropenia [Unknown]
  - Mucormycosis [Recovered/Resolved]
  - Electrolyte imbalance [Unknown]
